FAERS Safety Report 8219816-9 (Version None)
Quarter: 2012Q1

REPORT INFORMATION
  Report Type: 
  Country: None (occurrence: None)
  Receive Date: 20120319
  Receipt Date: 20120309
  Transmission Date: 20120608
  Serious: Yes (Hospitalization)
  Sender: FDA-Public Use
  Company Number: US-PFIZER INC-2009191213

PATIENT
  Sex: Male
  Weight: 63.04 kg

DRUGS (15)
  1. VINCRISTINE [Suspect]
     Indication: DIFFUSE LARGE B-CELL LYMPHOMA
     Dosage: 1.4 MG/M2, ON DAY 1 OF A 21-DAY CYCLE
     Route: 042
     Dates: start: 20090123, end: 20090313
  2. FENTANYL [Concomitant]
     Dosage: UNK
     Route: 062
     Dates: start: 20090320
  3. OMEPRAZOLE [Concomitant]
     Dosage: UNK
     Dates: start: 20090127
  4. CYCLOPHOSPHAMIDE [Suspect]
     Indication: DIFFUSE LARGE B-CELL LYMPHOMA
     Dosage: 750 MG/M2, ON DAY 1 OF A 21-DAY CYCLE
     Route: 042
     Dates: start: 20090123, end: 20090313
  5. ENZASTAURINE [Suspect]
     Dosage: 500 MG, DAILY
     Route: 048
     Dates: start: 20090125, end: 20090319
  6. RITUXIMAB [Suspect]
     Indication: DIFFUSE LARGE B-CELL LYMPHOMA
     Dosage: 375 MG/M2, ON DAY 1 OF A 21-DAY CYCLE
     Route: 042
     Dates: start: 20090123, end: 20090313
  7. PREDNISONE [Concomitant]
     Dosage: UNK
     Dates: start: 20090106
  8. ZOFRAN [Concomitant]
     Dosage: UNK
     Dates: start: 20090127
  9. DOXORUBICIN HCL [Suspect]
     Indication: DIFFUSE LARGE B-CELL LYMPHOMA
     Dosage: 50 MG/M2, ON DAY 1 OF A 21-DAY CYCLE
     Route: 042
     Dates: start: 20090123, end: 20090313
  10. ENZASTAURINE [Suspect]
     Indication: DIFFUSE LARGE B-CELL LYMPHOMA
     Dosage: 1125 MG, LOADING DOSE, ON DAY 2
     Route: 048
     Dates: start: 20090124, end: 20090124
  11. HYDROMORPHONE [Concomitant]
     Dosage: UNK
     Dates: start: 20090119
  12. MEGESTROL [Concomitant]
     Dosage: UNK
     Dates: start: 20090306
  13. PREDNISONE TAB [Suspect]
     Indication: DIFFUSE LARGE B-CELL LYMPHOMA
     Dosage: 100 MG, ON DAYS 1 THROUGH 5 OF A 21-DAY CYCLE
     Route: 048
     Dates: start: 20090123, end: 20090313
  14. IRON [Concomitant]
     Dosage: UNK
     Dates: start: 20090123
  15. MARINOL [Concomitant]
     Dosage: UNK
     Dates: start: 20090113

REACTIONS (5)
  - FATIGUE [None]
  - DEHYDRATION [None]
  - PNEUMONIA [None]
  - ANAEMIA [None]
  - HYPOTENSION [None]
